FAERS Safety Report 6232935-1 (Version None)
Quarter: 2009Q2

REPORT INFORMATION
  Report Type: 
  Country: None (occurrence: None)
  Receive Date: 20090612
  Receipt Date: 20090605
  Transmission Date: 20091009
  Serious: Yes (Hospitalization)
  Sender: FDA-Public Use
  Company Number: 2009AL003719

PATIENT
  Age: 52 Year
  Sex: Male

DRUGS (7)
  1. CARVEDILOL [Suspect]
     Dosage: 6.23 MG; BID
  2. SIRONOLACTONE              TABLETS USP, 25MG (AELLC) [Suspect]
     Dosage: 25 MG; TIW
  3. LIDOCAINE HYDROCHLORIDE ORAL TOPICAL SOLUTION USP, 2% (VISCOUS) [Suspect]
     Indication: ORAL PAIN
  4. IBUPROFEN ORAL SUSPENSION USP, 100 MG/5 ML [Suspect]
     Indication: HEADACHE
     Dosage: 800 MG, PRN
  5. FUROSEMIDE [Concomitant]
  6. LISINOPRIL [Concomitant]
  7. DEXAMETHASONE [Concomitant]

REACTIONS (11)
  - BLINDNESS TRANSIENT [None]
  - BREATH ODOUR [None]
  - COMA [None]
  - CONJUNCTIVAL SCAR [None]
  - LYMPHOCYTIC INFILTRATION [None]
  - ORAL PAIN [None]
  - SCAR [None]
  - SEPSIS [None]
  - SPEECH DISORDER [None]
  - SYMBLEPHARON [None]
  - TOXIC EPIDERMAL NECROLYSIS [None]
